FAERS Safety Report 17886004 (Version 1)
Quarter: 2020Q2

REPORT INFORMATION
  Report Type: Spontaneous
  Country: US (occurrence: US)
  Receive Date: 20200611
  Receipt Date: 20200611
  Transmission Date: 20200714
  Serious: Yes (Hospitalization, Other)
  Sender: FDA-Public Use
  Company Number: US-009507513-2006USA001209

PATIENT
  Age: 69 Year
  Sex: Male

DRUGS (6)
  1. MYRBETRIQ [Suspect]
     Active Substance: MIRABEGRON
     Dosage: UNKNOWN
  2. SINEMET [Suspect]
     Active Substance: CARBIDOPA\LEVODOPA
     Dosage: UNKNOWN
     Route: 048
  3. ESCITALOPRAM [Suspect]
     Active Substance: ESCITALOPRAM OXALATE
     Dosage: AT BEDTIME
  4. NUPLAZID [Suspect]
     Active Substance: PIMAVANSERIN TARTRATE
     Indication: PARKINSON^S DISEASE
     Dosage: 34 MG DAILY (IN THE MORNING)
     Route: 048
     Dates: start: 201811
  5. KRISTALOSE [Suspect]
     Active Substance: LACTULOSE
     Dosage: UNKNOWN
  6. MIDODRINE HYDROCHLORIDE. [Suspect]
     Active Substance: MIDODRINE HYDROCHLORIDE
     Dosage: UNKNOWN

REACTIONS (3)
  - Constipation [Unknown]
  - Haemorrhoidal haemorrhage [Unknown]
  - Hallucination [Unknown]

NARRATIVE: CASE EVENT DATE: 20200123
